FAERS Safety Report 4996798-4 (Version None)
Quarter: 2006Q2

REPORT INFORMATION
  Report Type: 
  Country: None (occurrence: None)
  Receive Date: 20060505
  Receipt Date: 20060329
  Transmission Date: 20061013
  Serious: Yes (Other)
  Sender: FDA-Public Use
  Company Number: 2006043311

PATIENT
  Sex: Female
  Weight: 50.8029 kg

DRUGS (4)
  1. DETROL LA [Suspect]
     Indication: POLLAKIURIA
     Dosage: 4 MG (4 MG, 1 IN 1 D), ORAL
     Route: 048
  2. PLAVIX [Concomitant]
  3. FOSAMAX [Concomitant]
  4. OPHTHALMOLOGICALS (OPTHALMOLOGICALS) [Concomitant]

REACTIONS (6)
  - ARTHRITIS [None]
  - ASTHMA [None]
  - BODY HEIGHT DECREASED [None]
  - CORONARY ARTERY OCCLUSION [None]
  - MACULAR DEGENERATION [None]
  - WEIGHT DECREASED [None]
